FAERS Safety Report 8084940-0 (Version None)
Quarter: 2012Q1

REPORT INFORMATION
  Report Type: 
  Country: None (occurrence: None)
  Receive Date: 20120128
  Receipt Date: 20110331
  Transmission Date: 20120608
  Serious: No
  Sender: FDA-Public Use
  Company Number: US-ABBOTT-11P-163-0715672-00

PATIENT
  Age: 30 Year
  Sex: Female

DRUGS (4)
  1. HUMIRA [Suspect]
     Indication: CROHN'S DISEASE
     Dosage: LOADING DOSE
     Dates: start: 20110331
  2. UNKNOWN MEDICATION [Concomitant]
     Indication: CONTRACEPTION
     Dosage: DAILY
  3. MERCAPTOPURINE [Concomitant]
     Indication: CROHN'S DISEASE
  4. ACIPHEX [Concomitant]
     Indication: DYSPEPSIA
     Dosage: DAILY

REACTIONS (5)
  - INCORRECT DOSE ADMINISTERED [None]
  - INJECTION SITE PAIN [None]
  - WRONG TECHNIQUE IN DRUG USAGE PROCESS [None]
  - INJECTION SITE VESICLES [None]
  - INJECTION SITE URTICARIA [None]
